FAERS Safety Report 22385126 (Version 1)
Quarter: 2023Q2

REPORT INFORMATION
  Report Type: Report from Study
  Country: US (occurrence: US)
  Receive Date: 20230530
  Receipt Date: 20230530
  Transmission Date: 20230721
  Serious: Yes (Hospitalization)
  Sender: FDA-Public Use
  Company Number: US-PFIZER INC-PV202300094771

PATIENT
  Age: 47 Year
  Sex: Male

DRUGS (2)
  1. MEKTOVI [Suspect]
     Active Substance: BINIMETINIB
     Indication: Malignant melanoma
     Dosage: 45 MG, 2X/DAY  (3 TABLETS BY MOUTH TWICE DAILY)
     Route: 048
     Dates: start: 20230514
  2. BRAFTOVI [Suspect]
     Active Substance: ENCORAFENIB
     Indication: Malignant melanoma
     Dosage: 450 MG, 1X/DAY (6 CAPSULES BY MOUTH ONCE DAILY)
     Route: 048
     Dates: start: 20230514

REACTIONS (4)
  - Abdominal pain [Not Recovered/Not Resolved]
  - Pancreatic enlargement [Not Recovered/Not Resolved]
  - Abdominal distension [Not Recovered/Not Resolved]
  - Food intolerance [Not Recovered/Not Resolved]

NARRATIVE: CASE EVENT DATE: 20230501
